FAERS Safety Report 4921984-9 (Version None)
Quarter: 2006Q1

REPORT INFORMATION
  Report Type: 
  Country: None (occurrence: None)
  Receive Date: 20060223
  Receipt Date: 20060223
  Transmission Date: 20060701
  Serious: Yes (Life-Threatening)
  Sender: FDA-Public Use
  Company Number: None

PATIENT
  Age: 82 Year
  Sex: Female

DRUGS (15)
  1. WARFARIN SODIUM [Suspect]
     Indication: ATRIAL FIBRILLATION
     Dosage: 4MG ALT 6 MG
  2. CELEBREX [Concomitant]
  3. CIPRO [Concomitant]
  4. COZAAR [Concomitant]
  5. PREVACID [Concomitant]
  6. DARVOCET [Concomitant]
  7. MAXAIR [Concomitant]
  8. DIGOXIN [Concomitant]
  9. LASIX [Concomitant]
  10. MIACALCIN [Concomitant]
  11. MEDIGINE [Concomitant]
  12. ARICEPT [Concomitant]
  13. MULTIVIT [Concomitant]
  14. BUSPAR [Concomitant]
  15. CARDIZEM [Concomitant]

REACTIONS (1)
  - HAEMATOMA [None]
